FAERS Safety Report 9352434 (Version 2)
Quarter: 2014Q1

REPORT INFORMATION
  Report Type: Spontaneous
  Country: US (occurrence: US)
  Receive Date: 20130617
  Receipt Date: 20140120
  Transmission Date: 20141002
  Serious: Yes (Hospitalization, Other)
  Sender: FDA-Public Use
  Company Number: US-MERCK-1306USA006645

PATIENT
  Sex: Male

DRUGS (6)
  1. JANUVIA [Suspect]
     Indication: TYPE 2 DIABETES MELLITUS
     Dosage: 100 MG, ONCE DAILY
     Route: 048
     Dates: start: 20130314, end: 201304
  2. PROSCAR [Concomitant]
     Dosage: 5 MG, QD
     Route: 048
     Dates: start: 2009
  3. PRILOSEC [Concomitant]
     Dosage: 20 MG, QD
     Route: 048
     Dates: start: 2007
  4. METFORMIN [Concomitant]
     Dosage: DOSAGE FORM: 1000, TOTAL DAILY DOSE: 2
     Route: 048
     Dates: start: 2008
  5. TAMSULOSIN HYDROCHLORIDE [Concomitant]
     Dosage: 0.4 MG, QD
     Route: 048
     Dates: start: 2009
  6. VIAGRA [Concomitant]
     Dosage: 100 MG, PRN
     Route: 048
     Dates: start: 2008

REACTIONS (1)
  - Pancreatitis [Recovered/Resolved]
